FAERS Safety Report 9614572 (Version 2)
Quarter: 2013Q4

REPORT INFORMATION
  Report Type: Report from Study
  Country: BR (occurrence: BR)
  Receive Date: 20131011
  Receipt Date: 20131014
  Transmission Date: 20140711
  Serious: Yes (Other)
  Sender: FDA-Public Use
  Company Number: PHHY2013BR111577

PATIENT
  Age: 50 Year
  Sex: Female

DRUGS (3)
  1. FORASEQ [Suspect]
     Indication: EMPHYSEMA
     Dosage: UNK UKN, UNK
  2. SERETIDE [Suspect]
     Indication: EMPHYSEMA
     Dosage: UNK
  3. AMINOPHYLLINE [Suspect]
     Indication: EMPHYSEMA
     Dosage: UNK UKN, UNK

REACTIONS (9)
  - Emphysema [Unknown]
  - Flushing [Unknown]
  - Dyspnoea [Recovering/Resolving]
  - Vital capacity decreased [Unknown]
  - Forced expiratory volume decreased [Unknown]
  - Respiratory tract infection [Unknown]
  - Condition aggravated [Unknown]
  - Respiratory disorder [Unknown]
  - Alpha-1 anti-trypsin deficiency [Unknown]
